FAERS Safety Report 21689043 (Version 3)
Quarter: 2023Q4

REPORT INFORMATION
  Report Type: Report from Study
  Country: MX (occurrence: MX)
  Receive Date: 20221206
  Receipt Date: 20231004
  Transmission Date: 20240109
  Serious: Yes (Death, Other)
  Sender: FDA-Public Use
  Company Number: MX-002147023-NVSC2022MX282429

PATIENT
  Age: 66 Year
  Sex: Female
  Weight: 66 kg

DRUGS (1)
  1. KISQALI [Suspect]
     Active Substance: RIBOCICLIB
     Indication: Breast cancer
     Dosage: UNK
     Route: 048
     Dates: start: 20221128

REACTIONS (7)
  - Oncologic complication [Fatal]
  - Neoplasm [Unknown]
  - Hypertension [Unknown]
  - Bone disorder [Unknown]
  - Gastritis [Recovering/Resolving]
  - Food intolerance [Recovering/Resolving]
  - Abdominal pain upper [Recovering/Resolving]

NARRATIVE: CASE EVENT DATE: 20230101
